FAERS Safety Report 10137377 (Version 1)
Quarter: 2014Q2

REPORT INFORMATION
  Report Type: Spontaneous
  Country: US (occurrence: None)
  Receive Date: 20140425
  Receipt Date: 20140425
  Transmission Date: 20141212
  Serious: Yes (Death)
  Sender: FDA-Public Use
  Company Number: UTC-047249

PATIENT
  Age: 43 Year
  Sex: Female

DRUGS (1)
  1. TYVASO [Suspect]
     Indication: COR PULMONALE CHRONIC
     Route: 055
     Dates: start: 20130926, end: 20140403

REACTIONS (1)
  - Death [None]
